FAERS Safety Report 7997172-9 (Version None)
Quarter: 2011Q4

REPORT INFORMATION
  Report Type: 
  Country: None (occurrence: None)
  Receive Date: 20111221
  Receipt Date: 20111213
  Transmission Date: 20120403
  Serious: Yes (Other)
  Sender: FDA-Public Use
  Company Number: CN-SANOFI-AVENTIS-CON11CN0267

PATIENT
  Sex: Male

DRUGS (6)
  1. METOPROLOL TARTRATE [Concomitant]
  2. ATORVASTATIN [Interacting]
     Dosage: 10 MG PER DAY
     Route: 065
  3. ISOSORBIDE DINITRATE [Concomitant]
  4. HEPARIN [Concomitant]
  5. CLOPIDOGREL BISULFATE [Suspect]
     Route: 065
  6. ACETYLSALICYLIC ACID SRT [Concomitant]

REACTIONS (5)
  - HEPATOCELLULAR INJURY [None]
  - ALANINE AMINOTRANSFERASE INCREASED [None]
  - ASPARTATE AMINOTRANSFERASE INCREASED [None]
  - DRUG INTERACTION [None]
  - GAMMA-GLUTAMYLTRANSFERASE INCREASED [None]
